FAERS Safety Report 23439638 (Version 1)
Quarter: 2024Q1

REPORT INFORMATION
  Report Type: Spontaneous
  Country: CH (occurrence: CH)
  Receive Date: 20240124
  Receipt Date: 20240124
  Transmission Date: 20240410
  Serious: Yes (Hospitalization)
  Sender: FDA-Public Use
  Company Number: CH-NAPPMUNDI-GBR-2024-0113820

PATIENT
  Age: 78 Year
  Sex: Female

DRUGS (7)
  1. MORPHINE [Suspect]
     Active Substance: MORPHINE
     Indication: Perioperative analgesia
     Dosage: UNK
     Route: 048
     Dates: start: 20231128, end: 20231128
  2. TRANEXAMIC ACID [Suspect]
     Active Substance: TRANEXAMIC ACID
     Indication: Product used for unknown indication
     Dosage: UNK
     Route: 042
     Dates: start: 20231128, end: 20231128
  3. BUPIVACAINE [Suspect]
     Active Substance: BUPIVACAINE
     Indication: Perioperative analgesia
     Dosage: UNK
     Route: 038
     Dates: start: 20231128, end: 20231128
  4. KETOROLAC TROMETHAMINE [Suspect]
     Active Substance: KETOROLAC TROMETHAMINE
     Indication: Perioperative analgesia
     Dosage: IN TOTAL
     Route: 042
     Dates: start: 20231128, end: 20231128
  5. PERFALGAN [Concomitant]
     Active Substance: ACETAMINOPHEN
     Indication: Perioperative analgesia
     Dosage: IN TOTAL
     Route: 042
     Dates: start: 20231128, end: 20231128
  6. CEFUROXIME [Concomitant]
     Active Substance: CEFUROXIME
     Indication: Product used for unknown indication
     Dosage: IN TOTAL
     Route: 065
     Dates: start: 20231128, end: 20231128
  7. EPINEPHRINE [Concomitant]
     Active Substance: EPINEPHRINE
     Indication: Product used for unknown indication
     Dosage: IN TOTAL
     Route: 038
     Dates: start: 20231128, end: 20231128

REACTIONS (1)
  - Generalised tonic-clonic seizure [Recovered/Resolved]

NARRATIVE: CASE EVENT DATE: 20231128
